FAERS Safety Report 10562661 (Version 2)
Quarter: 2014Q4

REPORT INFORMATION
  Report Type: Spontaneous
  Country: JP (occurrence: JP)
  Receive Date: 20141104
  Receipt Date: 20141129
  Transmission Date: 20150529
  Serious: No
  Sender: FDA-Public Use
  Company Number: JP-AMGEN-JPNSP2014084655

PATIENT
  Age: 4 Decade
  Sex: Male

DRUGS (1)
  1. ROMIPLATE [Suspect]
     Active Substance: ROMIPLOSTIM
     Indication: IMMUNE THROMBOCYTOPENIC PURPURA
     Dosage: UNK
     Route: 058
     Dates: start: 2013

REACTIONS (1)
  - Posterior reversible encephalopathy syndrome [Recovered/Resolved]
